FAERS Safety Report 21954554 (Version 1)
Quarter: 2023Q1

REPORT INFORMATION
  Report Type: Spontaneous
  Country: FR (occurrence: FR)
  Receive Date: 20230205
  Receipt Date: 20230205
  Transmission Date: 20230417
  Serious: Yes (Life-Threatening, Hospitalization, Other)
  Sender: FDA-Public Use
  Company Number: None

PATIENT
  Age: 48 Year
  Sex: Female

DRUGS (15)
  1. ACETAMINOPHEN\TRAMADOL [Suspect]
     Active Substance: ACETAMINOPHEN\TRAMADOL
     Indication: Product used for unknown indication
     Route: 065
  2. DULOXETINE [Suspect]
     Active Substance: DULOXETINE
     Indication: Product used for unknown indication
     Route: 065
  3. KETOPROFEN [Suspect]
     Active Substance: KETOPROFEN
     Indication: Product used for unknown indication
     Route: 065
  4. SYMBICORT [Suspect]
     Active Substance: BUDESONIDE\FORMOTEROL FUMARATE DIHYDRATE
     Indication: Product used for unknown indication
     Route: 065
  5. BUDESONIDE [Suspect]
     Active Substance: BUDESONIDE
     Indication: Product used for unknown indication
     Route: 065
  6. TERBUTALINE [Suspect]
     Active Substance: TERBUTALINE
     Indication: Product used for unknown indication
     Route: 065
  7. MONTELUKAST [Suspect]
     Active Substance: MONTELUKAST SODIUM
     Indication: Product used for unknown indication
     Route: 065
  8. ACETAMINOPHEN\OPIUM [Suspect]
     Active Substance: ACETAMINOPHEN\OPIUM
     Indication: Sleep disorder
     Route: 065
  9. ACETAMINOPHEN\OPIUM [Suspect]
     Active Substance: ACETAMINOPHEN\OPIUM
     Indication: Osteoporosis
     Route: 065
  10. ACETAMINOPHEN\OPIUM [Suspect]
     Active Substance: ACETAMINOPHEN\OPIUM
     Indication: Hiatus hernia
     Route: 065
  11. ACETAMINOPHEN\OPIUM [Suspect]
     Active Substance: ACETAMINOPHEN\OPIUM
     Indication: Periodontal disease
     Route: 065
  12. IPRATROPIUM BROMIDE [Suspect]
     Active Substance: IPRATROPIUM BROMIDE
     Indication: Product used for unknown indication
     Route: 065
  13. BROMAZEPAM [Suspect]
     Active Substance: BROMAZEPAM
     Indication: Intentional product misuse
     Route: 048
  14. BROMAZEPAM [Suspect]
     Active Substance: BROMAZEPAM
     Route: 048
  15. LEVOMEPROMAZINE [Suspect]
     Active Substance: LEVOMEPROMAZINE
     Indication: Intentional product misuse
     Route: 065

REACTIONS (3)
  - Coma [Recovered/Resolved]
  - Pneumonia aspiration [Recovered/Resolved]
  - Drug abuse [Not Recovered/Not Resolved]

NARRATIVE: CASE EVENT DATE: 20221101
